FAERS Safety Report 16767225 (Version 1)
Quarter: 2019Q3

REPORT INFORMATION
  Report Type: Spontaneous
  Country: FR (occurrence: FR)
  Receive Date: 20190903
  Receipt Date: 20190903
  Transmission Date: 20191005
  Serious: Yes (Hospitalization)
  Sender: FDA-Public Use
  Company Number: FR-MYLANLABS-2019M1081390

PATIENT
  Age: 48 Year
  Sex: Male
  Weight: 84 kg

DRUGS (8)
  1. BEVITINE [Suspect]
     Active Substance: THIAMINE HYDROCHLORIDE
     Indication: ALCOHOLISM
     Dosage: 500 MILLIGRAM, QD
     Route: 048
     Dates: start: 20190124, end: 20190206
  2. BECILAN [Suspect]
     Active Substance: PYRIDOXINE
     Indication: ALCOHOLISM
     Dosage: 500 MILLIGRAM, QD
     Route: 048
     Dates: start: 20190124, end: 20190204
  3. FOLIC ACID. [Suspect]
     Active Substance: FOLIC ACID
     Indication: VITAMIN SUPPLEMENTATION
     Dosage: 5 MILLIGRAM, QD
     Route: 048
     Dates: start: 20190127, end: 20190204
  4. FLAGYL [Suspect]
     Active Substance: METRONIDAZOLE\METRONIDAZOLE HYDROCHLORIDE
     Indication: INFECTION
     Dosage: 500 MILLIGRAM, QD
     Route: 041
     Dates: start: 20190130, end: 20190206
  5. NICOTINE. [Suspect]
     Active Substance: NICOTINE
     Indication: TOBACCO ABUSE
     Dosage: UNK
     Route: 062
     Dates: start: 20190126, end: 20190206
  6. PHOSPHONEUROS [Suspect]
     Active Substance: CALCIUM PHOSPHATE, DIBASIC, ANHYDROUS\MAGNESIUM GLYCEROPHOSPHATE\PHOSPHORIC ACID\SODIUM PHOSPHATE, DIBASIC
     Indication: BLOOD PHOSPHORUS DECREASED
     Dosage: UNK
     Route: 048
     Dates: start: 20190126, end: 20190206
  7. TRAMADOL. [Suspect]
     Active Substance: TRAMADOL
     Indication: PAIN
     Dosage: 100 MILLIGRAM, QD
     Route: 048
     Dates: start: 20190124, end: 20190206
  8. LOVENOX [Suspect]
     Active Substance: ENOXAPARIN SODIUM
     Indication: THROMBOSIS PROPHYLAXIS
     Dosage: 4000 INTERNATIONAL UNIT, QD
     Route: 058
     Dates: start: 20190124, end: 20190206

REACTIONS (1)
  - Toxic skin eruption [Recovered/Resolved]

NARRATIVE: CASE EVENT DATE: 20190202
